FAERS Safety Report 4982758-6 (Version None)
Quarter: 2006Q2

REPORT INFORMATION
  Report Type: 
  Country: None (occurrence: None)
  Receive Date: 20060425
  Receipt Date: 20060104
  Transmission Date: 20061013
  Serious: Yes (Hospitalization, Other)
  Sender: FDA-Public Use
  Company Number: US-MERCK-0601USA00527

PATIENT
  Age: 69 Year
  Sex: Male
  Weight: 90 kg

DRUGS (4)
  1. VIOXX [Suspect]
     Indication: OSTEOARTHRITIS
     Route: 048
     Dates: start: 20000823, end: 20030909
  2. VIOXX [Suspect]
     Indication: SHOULDER PAIN
     Route: 048
     Dates: start: 20000823, end: 20030909
  3. ASPIRIN [Concomitant]
     Indication: PROPHYLAXIS
     Route: 065
     Dates: start: 19950101
  4. METOPROLOL [Concomitant]
     Indication: MYOCARDIAL INFARCTION
     Route: 065
     Dates: start: 19950101, end: 20030301

REACTIONS (8)
  - BRADYCARDIA [None]
  - CEREBRAL HAEMORRHAGE [None]
  - CONVULSION [None]
  - GOUT [None]
  - HYPERLIPIDAEMIA [None]
  - HYPOAESTHESIA [None]
  - HYPOTENSION [None]
  - MOUTH ULCERATION [None]
